FAERS Safety Report 15404869 (Version 1)
Quarter: 2018Q3

REPORT INFORMATION
  Report Type: Report from Study
  Country: None (occurrence: CA)
  Receive Date: 20180919
  Receipt Date: 20180919
  Transmission Date: 20181010
  Serious: Yes (Hospitalization)
  Sender: FDA-Public Use
  Company Number: CA-ABBVIE-18S-028-2490652-00

PATIENT
  Age: 94 Year
  Sex: Male
  Weight: 59.93 kg

DRUGS (2)
  1. SYNTHROID [Concomitant]
     Active Substance: LEVOTHYROXINE SODIUM
     Indication: PRODUCT USED FOR UNKNOWN INDICATION
     Route: 048
  2. LUPRON DEPOT [Suspect]
     Active Substance: LEUPROLIDE ACETATE
     Indication: PROSTATE CANCER
     Route: 030
     Dates: start: 2013

REACTIONS (3)
  - Mobility decreased [Not Recovered/Not Resolved]
  - Gastrointestinal tube insertion [Unknown]
  - Oesophageal prosthesis insertion [Unknown]

NARRATIVE: CASE EVENT DATE: 201808
